FAERS Safety Report 18598117 (Version 3)
Quarter: 2021Q2

REPORT INFORMATION
  Report Type: Spontaneous
  Country: US (occurrence: US)
  Receive Date: 20201210
  Receipt Date: 20210513
  Transmission Date: 20210717
  Serious: No
  Sender: FDA-Public Use
  Company Number: US-SA-2020SA351015

PATIENT
  Age: 12 Year
  Sex: Male

DRUGS (1)
  1. DUPIXENT [Suspect]
     Active Substance: DUPILUMAB
     Indication: DERMATITIS ATOPIC
     Dosage: 200 MG, QOW
     Route: 058
     Dates: start: 20201104

REACTIONS (11)
  - Eye disorder [Unknown]
  - Product dose omission issue [Unknown]
  - Sleep disorder [Unknown]
  - Eye irritation [Not Recovered/Not Resolved]
  - Dry skin [Unknown]
  - Eye pruritus [Unknown]
  - Eczema [Unknown]
  - Ocular hyperaemia [Unknown]
  - Product use issue [Unknown]
  - Pruritus [Unknown]
  - Periorbital swelling [Recovering/Resolving]

NARRATIVE: CASE EVENT DATE: 2020
